FAERS Safety Report 10155669 (Version 1)
Quarter: 2014Q2

REPORT INFORMATION
  Report Type: Spontaneous
  Country: FR (occurrence: FR)
  Receive Date: 20140506
  Receipt Date: 20140506
  Transmission Date: 20141212
  Serious: Yes (Hospitalization)
  Sender: FDA-Public Use
  Company Number: FR-GLAXOSMITHKLINE-B0989543A

PATIENT
  Age: 56 Year
  Sex: Male
  Weight: 63 kg

DRUGS (23)
  1. SERETIDE [Suspect]
     Indication: ASTHMA
     Dosage: 500MCG TWICE PER DAY
     Route: 055
  2. SOLUPRED [Suspect]
     Indication: PRODUCT USED FOR UNKNOWN INDICATION
     Route: 048
  3. NEORAL [Suspect]
     Indication: RENAL TRANSPLANT
     Dosage: 60MG TWICE PER DAY
     Route: 065
  4. VENTOLINE [Concomitant]
     Dosage: 5MG THREE TIMES PER DAY
     Route: 065
  5. CORDARONE [Concomitant]
     Dosage: 200MG PER DAY
     Route: 065
  6. TAHOR [Concomitant]
     Dosage: 20MG PER DAY
     Route: 065
  7. AMLOR [Concomitant]
     Dosage: 5MG PER DAY
     Route: 065
  8. INEXIUM [Concomitant]
     Dosage: 20MG PER DAY
     Route: 065
  9. ATROVENT [Concomitant]
     Dosage: .5MG TWICE PER DAY
     Route: 065
  10. BRICANYL [Concomitant]
     Dosage: 500MCG TWICE PER DAY
     Route: 065
  11. TRIATEC [Concomitant]
     Dosage: 1.25MG PER DAY
     Route: 065
  12. SOLUPRED [Concomitant]
     Dosage: 70MG PER DAY
     Route: 065
  13. BACTRIM [Concomitant]
     Dosage: 400MG THREE TIMES PER WEEK
     Route: 065
  14. FORLAX [Concomitant]
     Dosage: 10G TWICE PER DAY
     Route: 065
  15. ARANESP [Concomitant]
     Dosage: 30MCG WEEKLY
     Route: 065
  16. OCTAGAM [Concomitant]
     Dosage: 35000MG THREE TIMES PER WEEK
     Route: 065
  17. CALCIDIA [Concomitant]
     Dosage: 3TAB THREE TIMES PER DAY
     Route: 065
  18. LASILIX [Concomitant]
     Dosage: 250MG TWICE PER DAY
     Route: 065
  19. KALEORID LP [Concomitant]
     Dosage: 1000MG PER DAY
     Route: 065
  20. UVEDOSE [Concomitant]
     Dosage: 100000IU MONTHLY
     Route: 065
  21. CHIBRO-CADRON [Concomitant]
     Route: 065
  22. ATROPINE [Concomitant]
     Route: 065
  23. INDOCOLLYRE [Concomitant]
     Route: 065

REACTIONS (1)
  - Diabetes mellitus [Recovered/Resolved with Sequelae]
